FAERS Safety Report 8903121 (Version 1)
Quarter: 2012Q4

REPORT INFORMATION
  Report Type: 
  Country: BA (occurrence: BA)
  Receive Date: 20121112
  Receipt Date: 20121112
  Transmission Date: 20130627
  Serious: Yes (Hospitalization, Other)
  Sender: FDA-Public Use
  Company Number: BA-ELI_LILLY_AND_COMPANY-BA201211002042

PATIENT
  Age: 31 Year
  Sex: Male

DRUGS (3)
  1. OLANZAPINE [Suspect]
     Indication: SCHIZOPHRENIA, PARANOID TYPE
     Dosage: 10 mg, qd
  2. CHLORPROMAZINE [Concomitant]
     Dosage: 300 mg, qd
  3. HALOPERIDOL [Concomitant]
     Dosage: 15 mg, qd

REACTIONS (2)
  - Pulmonary embolism [Unknown]
  - Hyperprolactinaemia [Unknown]
